FAERS Safety Report 12210547 (Version 1)
Quarter: 2016Q1

REPORT INFORMATION
  Report Type: Spontaneous
  Country: US (occurrence: None)
  Receive Date: 20160324
  Receipt Date: 20160324
  Transmission Date: 20160526
  Serious: Yes (Other)
  Sender: FDA-Public Use
  Company Number: None

PATIENT
  Age: 40 Year
  Sex: Female
  Weight: 58.97 kg

DRUGS (8)
  1. VALTREX [Concomitant]
     Active Substance: VALACYCLOVIR HYDROCHLORIDE
  2. TUMERIC [Concomitant]
     Active Substance: TURMERIC
  3. VITAMIN B12 [Concomitant]
     Active Substance: CYANOCOBALAMIN
  4. BIOTIN [Concomitant]
     Active Substance: BIOTIN
  5. VITAMIN D [Concomitant]
     Active Substance: CHOLECALCIFEROL
  6. ARMOUR THYROID [Concomitant]
     Active Substance: THYROID, PORCINE
  7. SELENIUM [Concomitant]
     Active Substance: SELENIUM
  8. TRIAMTERENE-HCTZ, 37.5-25 SANDOZ [Suspect]
     Active Substance: HYDROCHLOROTHIAZIDE\TRIAMTERENE
     Indication: MENIERE^S DISEASE
     Dosage: 1 ONCE DAILY TAKEN BY MOUTH
     Route: 048
     Dates: start: 20151112, end: 20160317

REACTIONS (11)
  - Peripheral swelling [None]
  - Documented hypersensitivity to administered product [None]
  - Burning sensation [None]
  - Tinnitus [None]
  - Pruritus [None]
  - Psychotic disorder [None]
  - Joint swelling [None]
  - Therapy cessation [None]
  - Disease recurrence [None]
  - Blister [None]
  - Insomnia [None]

NARRATIVE: CASE EVENT DATE: 20160317
